FAERS Safety Report 6251841-X (Version None)
Quarter: 2009Q2

REPORT INFORMATION
  Report Type: 
  Country: None (occurrence: None)
  Receive Date: 20090629
  Receipt Date: 20090615
  Transmission Date: 20091009
  Serious: Yes (Death, Other)
  Sender: FDA-Public Use
  Company Number: POMP-1000402

PATIENT
  Age: 1 Year
  Sex: Male

DRUGS (1)
  1. MYOZYME [Suspect]
     Indication: GLYCOGEN STORAGE DISEASE TYPE II
     Dosage: INTRAVENOUS
     Route: 042
     Dates: start: 20080122

REACTIONS (5)
  - ASPHYXIA [None]
  - CARDIOMEGALY [None]
  - CHOKING [None]
  - HYPOTONIA [None]
  - NO THERAPEUTIC RESPONSE [None]
